FAERS Safety Report 5917742-9 (Version None)
Quarter: 2008Q4

REPORT INFORMATION
  Report Type: 
  Country: None (occurrence: None)
  Receive Date: 20081014
  Receipt Date: 20080820
  Transmission Date: 20090506
  Serious: No
  Sender: FDA-Public Use
  Company Number: US-BAYER-200832327NA

PATIENT
  Age: 52 Year
  Sex: Female

DRUGS (2)
  1. ULTRAVIST (PHARMACY BULK) [Suspect]
     Indication: COMPUTERISED TOMOGRAM ABDOMEN
     Dosage: TOTAL DAILY DOSE: 95 ML
     Route: 042
  2. PREDNISONE [Concomitant]
     Indication: CONTRAST MEDIA ALLERGY
     Dosage: AS USED: 50 MG

REACTIONS (1)
  - THROAT IRRITATION [None]
